FAERS Safety Report 5035177-0 (Version None)
Quarter: 2006Q2

REPORT INFORMATION
  Report Type: 
  Country: None (occurrence: None)
  Receive Date: 20060519
  Receipt Date: 20051024
  Transmission Date: 20061013
  Serious: Yes (Other)
  Sender: FDA-Public Use
  Company Number: 2005146681

PATIENT
  Age: 59 Year
  Sex: Male
  Weight: 99.7913 kg

DRUGS (1)
  1. NICOTROL [Suspect]
     Indication: SMOKING CESSATION THERAPY
     Dosage: 1 BOTTLE EVERY 2 DAYS,NASAL
     Route: 045
     Dates: start: 20050401, end: 20051022

REACTIONS (2)
  - DEPENDENCE [None]
  - MEDICATION ERROR [None]
